FAERS Safety Report 17944673 (Version 1)
Quarter: 2020Q2

REPORT INFORMATION
  Report Type: Spontaneous
  Country: TR (occurrence: TR)
  Receive Date: 20200626
  Receipt Date: 20200626
  Transmission Date: 20200714
  Serious: Yes (Life-Threatening, Hospitalization, Other)
  Sender: FDA-Public Use
  Company Number: TR-SUN PHARMACEUTICAL INDUSTRIES LTD-2020R1-251273

PATIENT
  Age: 50 Year
  Sex: Male

DRUGS (2)
  1. DABIGATRAN [Interacting]
     Active Substance: DABIGATRAN
     Indication: DEEP VEIN THROMBOSIS
     Dosage: 150 MILLIGRAM, BID
     Route: 065
  2. INDOMETHACIN. [Suspect]
     Active Substance: INDOMETHACIN
     Indication: PAIN IN EXTREMITY
     Dosage: UNK, QD
     Route: 065

REACTIONS (6)
  - Sinus tachycardia [Unknown]
  - Drug interaction [Unknown]
  - Toxicity to various agents [Unknown]
  - Cardiomegaly [Unknown]
  - Acute kidney injury [Recovering/Resolving]
  - Pericardial effusion [Recovered/Resolved]
